FAERS Safety Report 5939157-X (Version None)
Quarter: 2008Q4

REPORT INFORMATION
  Report Type: 
  Country: None (occurrence: None)
  Receive Date: 20081103
  Receipt Date: 20081022
  Transmission Date: 20090506
  Serious: Yes (Hospitalization, Other)
  Sender: FDA-Public Use
  Company Number: JP-PFIZER INC-2008070372

PATIENT
  Sex: Female

DRUGS (8)
  1. CELECOX [Suspect]
     Indication: RHEUMATOID ARTHRITIS
     Dosage: DAILY DOSE:200MG
     Route: 048
     Dates: start: 20071210
  2. AZULFIDINE EN-TABS [Concomitant]
     Route: 048
     Dates: start: 20080123
  3. RENIVACE [Concomitant]
     Route: 048
  4. ACTONEL [Concomitant]
     Dates: start: 20071217
  5. PREDNISOLONE [Concomitant]
     Route: 048
     Dates: start: 20071217
  6. ATENOLOL [Concomitant]
     Route: 048
     Dates: start: 20080220
  7. RABEPRAZOLE SODIUM [Concomitant]
     Route: 048
     Dates: start: 20071227
  8. TRICHLORMETHIAZIDE [Concomitant]
     Route: 048
     Dates: start: 20080220

REACTIONS (2)
  - AORTIC ANEURYSM [None]
  - REFLUX OESOPHAGITIS [None]
